FAERS Safety Report 23985683 (Version 1)
Quarter: 2024Q2

REPORT INFORMATION
  Report Type: Spontaneous
  Country: GB (occurrence: GB)
  Receive Date: 20240618
  Receipt Date: 20240618
  Transmission Date: 20240716
  Serious: Yes (Other)
  Sender: FDA-Public Use
  Company Number: GB-MHRA-TPP17705078C4801182YC1717590312499

PATIENT

DRUGS (16)
  1. PREDNISOLONE [Suspect]
     Active Substance: PREDNISOLONE
     Indication: Sinusitis
     Dosage: 5 MG( TABLET)
     Route: 048
     Dates: start: 20231012, end: 20231025
  2. AMOXICILLIN [Concomitant]
     Active Substance: AMOXICILLIN
     Indication: Ill-defined disorder
     Dosage: 1 DOSAGE FORM, TID
     Dates: start: 20240520, end: 20240527
  3. LANSOPRAZOLE [Concomitant]
     Active Substance: LANSOPRAZOLE
     Indication: Ill-defined disorder
     Dosage: 1 DOSAGE FORM, QD
     Dates: start: 20240111
  4. PENICILLIN V [Concomitant]
     Active Substance: PENICILLIN V
     Indication: Ill-defined disorder
     Dosage: 10 ML, QID (2X5ML SPOON 4 TIMES/ TO TREAT SINUSITIS)
     Dates: start: 20240326, end: 20240402
  5. PENICILLIN V [Concomitant]
     Active Substance: PENICILLIN V
     Indication: Sinusitis
  6. AZELASTINE [Concomitant]
     Active Substance: AZELASTINE\AZELASTINE HYDROCHLORIDE
     Indication: Ill-defined disorder
     Dosage: 1 DOSAGE FORM, BID (INSTILL ONE SPRAY INTO EACH NOSTRIL TWICE A DAY)
     Dates: start: 20240418, end: 20240516
  7. DOXYCYCLINE [Concomitant]
     Active Substance: DOXYCYCLINE\DOXYCYCLINE HYCLATE
     Indication: Ill-defined disorder
     Dosage: UNK, QD (TAKE TWO NOW THEN ONE DAILY (5 DAYS TOTAL))
     Dates: start: 20240501, end: 20240501
  8. HYDROXYZINE [Concomitant]
     Active Substance: HYDROXYZINE HYDROCHLORIDE
     Indication: Ill-defined disorder
     Dosage: UNK (TAKE 1 8PM NOLATER)
     Dates: start: 20240510
  9. IPRATROPIUM BROMIDE [Concomitant]
     Active Substance: IPRATROPIUM BROMIDE\IPRATROPIUM BROMIDE ANHYDROUS
     Indication: Ill-defined disorder
     Dosage: 2 PUFF, BID((2 PUFFS EACH NOSTRIL AM NOON + PM FOR 1 MONTH))
     Dates: start: 20240510
  10. FLUTICASONE PROPIONATE [Concomitant]
     Active Substance: FLUTICASONE PROPIONATE
     Indication: Ill-defined disorder
     Dosage: UNK, BID (TWO SPRAYS TWICE PER DAY AND REDUCE TO ONE SPRA)
     Dates: start: 20240520
  11. DESLORATADINE [Concomitant]
     Active Substance: DESLORATADINE
     Indication: Ill-defined disorder
     Dosage: 1 DOSAGE FORM, QD
     Dates: start: 20220810
  12. NASONEX [Concomitant]
     Active Substance: MOMETASONE FUROATE
     Indication: Ill-defined disorder
     Dosage: 2 DOSAGE FORM, QD
     Dates: start: 20220810
  13. CALCIUM CARBONATE [Concomitant]
     Active Substance: CALCIUM CARBONATE
     Indication: Ill-defined disorder
     Dosage: 1 DOSAGE FORM((EVERY 2 DAYS)
     Dates: start: 20230227
  14. AYMES ACTAGAIN JUCE [Concomitant]
     Dosage: UNK (USE AS DIRECTED)
     Dates: start: 20231026
  15. QUETIAPINE [Concomitant]
     Active Substance: QUETIAPINE
     Indication: Ill-defined disorder
     Dosage: 125 MG, QD (AT NIGHT UNTIL REVI)
     Dates: start: 20240212, end: 20240510
  16. HYDROXYCHLOROQUINE SULFATE [Concomitant]
     Active Substance: HYDROXYCHLOROQUINE SULFATE
     Indication: Ill-defined disorder
     Dosage: 1 DOSAGE FORM, QD
     Dates: start: 20240327

REACTIONS (1)
  - Psychotic disorder [Recovered/Resolved]

NARRATIVE: CASE EVENT DATE: 20231110
